FAERS Safety Report 7737720-7 (Version None)
Quarter: 2011Q3

REPORT INFORMATION
  Report Type: 
  Country: None (occurrence: None)
  Receive Date: 20110908
  Receipt Date: 20110901
  Transmission Date: 20111222
  Serious: Yes (Hospitalization)
  Sender: FDA-Public Use
  Company Number: US-ELI_LILLY_AND_COMPANY-US201109000710

PATIENT
  Sex: Female

DRUGS (2)
  1. EFFIENT [Suspect]
     Dosage: 60 MG, SINGLE
     Route: 048
     Dates: start: 20110713, end: 20110713
  2. EFFIENT [Suspect]
     Indication: STENT PLACEMENT
     Dosage: 10 MG, UNK
     Route: 048
     Dates: start: 20110714, end: 20110901

REACTIONS (1)
  - ADRENAL INSUFFICIENCY [None]
